FAERS Safety Report 15424247 (Version 2)
Quarter: 2018Q4

REPORT INFORMATION
  Report Type: Spontaneous
  Country: US (occurrence: US)
  Receive Date: 20180925
  Receipt Date: 20181003
  Transmission Date: 20190204
  Serious: Yes (Death, Hospitalization, Other)
  Sender: FDA-Public Use
  Company Number: US-UNITED THERAPEUTICS-UNT-2018-014646

PATIENT
  Age: 73 Year
  Sex: Female
  Weight: 77.55 kg

DRUGS (3)
  1. LETAIRIS [Concomitant]
     Active Substance: AMBRISENTAN
     Indication: PRODUCT USED FOR UNKNOWN INDICATION
     Route: 065
  2. REMODULIN [Suspect]
     Active Substance: TREPROSTINIL
     Indication: PULMONARY ARTERIAL HYPERTENSION
     Dosage: 0.08 ?G/KG, CONTINUING
     Route: 041
     Dates: start: 20170310
  3. ADCIRCA [Concomitant]
     Active Substance: TADALAFIL
     Indication: PRODUCT USED FOR UNKNOWN INDICATION
     Route: 065

REACTIONS (13)
  - Liver disorder [Unknown]
  - Cardiogenic shock [Fatal]
  - Condition aggravated [Fatal]
  - Septic shock [Fatal]
  - Acute kidney injury [Unknown]
  - Pulmonary arterial hypertension [Unknown]
  - Metabolic acidosis [Unknown]
  - Immune thrombocytopenic purpura [Unknown]
  - Metabolic encephalopathy [Unknown]
  - Pneumonia [Fatal]
  - Sepsis [Fatal]
  - Clostridium difficile colitis [Fatal]
  - Memory impairment [Unknown]

NARRATIVE: CASE EVENT DATE: 201809
